FAERS Safety Report 17965183 (Version 1)
Quarter: 2020Q3

REPORT INFORMATION
  Report Type: Spontaneous
  Country: PH (occurrence: PH)
  Receive Date: 20200701
  Receipt Date: 20200701
  Transmission Date: 20201103
  Serious: Yes (Other)
  Sender: FDA-Public Use
  Company Number: PH-SUN PHARMACEUTICAL INDUSTRIES LTD-2020R1-251711

PATIENT
  Age: 26 Year
  Sex: Female

DRUGS (3)
  1. TERBUTALINE [Suspect]
     Active Substance: TERBUTALINE
     Indication: PREMATURE LABOUR
     Dosage: 125 MICROGRAM
     Route: 065
  2. MAGNESIUM [Suspect]
     Active Substance: MAGNESIUM
     Indication: PREMATURE LABOUR
     Dosage: UNK
     Route: 065
  3. NIFEDIPINE. [Suspect]
     Active Substance: NIFEDIPINE
     Indication: PREMATURE LABOUR
     Dosage: 60 MILLIGRAM
     Route: 065

REACTIONS (2)
  - Pulmonary oedema [Unknown]
  - Exposure during pregnancy [Unknown]
